FAERS Safety Report 7408441-5 (Version None)
Quarter: 2011Q2

REPORT INFORMATION
  Report Type: 
  Country: None (occurrence: None)
  Receive Date: 20110401
  Receipt Date: 20110322
  Transmission Date: 20111010
  Serious: Yes (Hospitalization)
  Sender: FDA-Public Use
  Company Number: UTC-005846

PATIENT
  Age: 63 Year
  Sex: Female
  Weight: 68.2 kg

DRUGS (3)
  1. DIURETICS (DIURETICS) [Concomitant]
  2. REMODULIN [Suspect]
     Dosage: 20.16 UG/KG (0.014 UG/KG, 1 IN 1 MIN), INTRAVENOUS
     Route: 042
     Dates: start: 20101025
  3. REVATIO [Concomitant]

REACTIONS (1)
  - FLUID RETENTION [None]
